FAERS Safety Report 8759961 (Version 1)
Quarter: 2012Q4

REPORT INFORMATION
  Report Type: 
  Country: JP (occurrence: JP)
  Receive Date: 20120829
  Receipt Date: 20120829
  Transmission Date: 20130627
  Serious: Yes (Other)
  Sender: FDA-Public Use
  Company Number: JP-GLAXOSMITHKLINE-B0825568A

PATIENT
  Age: 33 Year
  Sex: Female

DRUGS (1)
  1. ARIXTRA [Suspect]
     Indication: THROMBOSIS PROPHYLAXIS
     Dosage: 1.5MG Per day
     Route: 058
     Dates: start: 20120817, end: 20120821

REACTIONS (1)
  - Haematemesis [Recovered/Resolved]
